FAERS Safety Report 5556108-0 (Version None)
Quarter: 2007Q4

REPORT INFORMATION
  Report Type: 
  Country: None (occurrence: None)
  Receive Date: 20071130
  Receipt Date: 20070703
  Transmission Date: 20080405
  Serious: No
  Sender: FDA-Public Use
  Company Number: 2006PV011839

PATIENT
  Age: 63 Year
  Sex: Female
  Weight: 81.7 kg

DRUGS (18)
  1. EXENATIDE(EXENATIDE) PEN,DISPOSABLE [Suspect]
     Indication: TYPE 2 DIABETES MELLITUS
     Dosage: 10 UG, 2/D, SUBCUTANEOUS
     Route: 058
     Dates: start: 20060403
  2. EXENATIDE(EXENATIDE) PEN,DISPOSABLE [Suspect]
     Dosage: SEE IMAGE
     Route: 058
     Dates: start: 20060302, end: 20060402
  3. EXENATIDE(EXENATIDE) PEN,DISPOSABLE [Suspect]
     Dosage: SEE IMAGE
     Route: 058
     Dates: start: 20060701, end: 20060801
  4. EXENATIDE(EXENATIDE) PEN,DISPOSABLE [Suspect]
     Dosage: SEE IMAGE
     Route: 058
     Dates: start: 20060801, end: 20061201
  5. EXENATIDE(EXENATIDE) PEN,DISPOSABLE [Suspect]
     Dosage: SEE IMAGE
     Route: 058
     Dates: start: 20070101, end: 20070201
  6. EXENATIDE(EXENATIDE) PEN,DISPOSABLE [Suspect]
     Dosage: SEE IMAGE
     Route: 058
     Dates: start: 20070201, end: 20070301
  7. EXENATIDE(EXENATIDE) PEN,DISPOSABLE [Suspect]
     Dosage: SEE IMAGE
     Route: 058
     Dates: start: 20060101
  8. EXENATIDE(EXENATIDE) PEN,DISPOSABLE [Suspect]
     Dosage: SEE IMAGE
     Route: 058
     Dates: start: 20060101
  9. EXENATIDE(EXENATIDE) PEN,DISPOSABLE [Suspect]
     Dosage: SEE IMAGE
     Route: 058
     Dates: start: 20060403
  10. EXENATIDE(EXENATIDE) PEN,DISPOSABLE [Suspect]
     Dosage: SEE IMAGE
     Route: 058
     Dates: start: 20070301
  11. ACTOS [Concomitant]
  12. SYNTHROID [Concomitant]
  13. BENACAR [Concomitant]
  14. GLUCOVANCE [Concomitant]
  15. METFORMIN HCL [Concomitant]
  16. GLIPIZIDE [Concomitant]
  17. AMARYL [Concomitant]
  18. CRESTOR [Concomitant]

REACTIONS (8)
  - DRUG INEFFECTIVE [None]
  - GLYCOSYLATED HAEMOGLOBIN INCREASED [None]
  - INJECTION SITE HAEMORRHAGE [None]
  - INJECTION SITE RASH [None]
  - INJECTION SITE WARMTH [None]
  - NAUSEA [None]
  - STOMACH DISCOMFORT [None]
  - URTICARIA [None]
